FAERS Safety Report 23054006 (Version 1)
Quarter: 2023Q4

REPORT INFORMATION
  Report Type: Spontaneous
  Country: AU (occurrence: AU)
  Receive Date: 20231011
  Receipt Date: 20231011
  Transmission Date: 20240109
  Serious: Yes (Other)
  Sender: FDA-Public Use
  Company Number: AU-MLMSERVICE-20230925-4554573-1

PATIENT
  Age: 77 Year
  Sex: Male

DRUGS (5)
  1. ETOPOSIDE [Suspect]
     Active Substance: ETOPOSIDE
     Indication: Testicular germ cell cancer metastatic
     Dosage: FOUR CYCLES
  2. CISPLATIN [Suspect]
     Active Substance: CISPLATIN
     Indication: Metastases to lymph nodes
     Dosage: FOUR CYCLES
  3. PEGFILGRASTIM [Concomitant]
     Active Substance: PEGFILGRASTIM
     Indication: Chemotherapy side effect prophylaxis
  4. CISPLATIN [Suspect]
     Active Substance: CISPLATIN
     Indication: Metastases to retroperitoneum
     Dosage: FOUR CYCLES
  5. ETOPOSIDE [Suspect]
     Active Substance: ETOPOSIDE
     Indication: Metastases to retroperitoneum
     Dosage: FOUR CYCLES

REACTIONS (1)
  - Neuropathy peripheral [Recovering/Resolving]
